FAERS Safety Report 15552633 (Version 2)
Quarter: 2018Q4

REPORT INFORMATION
  Report Type: Report from Study
  Country: None (occurrence: US)
  Receive Date: 20181025
  Receipt Date: 20181114
  Transmission Date: 20190205
  Serious: Yes (Hospitalization, Other)
  Sender: FDA-Public Use
  Company Number: US-ABBVIE-18K-163-2496826-00

PATIENT
  Age: 69 Year
  Sex: Male
  Weight: 60.38 kg

DRUGS (1)
  1. HUMIRA [Suspect]
     Active Substance: ADALIMUMAB
     Indication: CROHN^S DISEASE
     Route: 058
     Dates: start: 2009, end: 201705

REACTIONS (34)
  - Asthenia [Recovering/Resolving]
  - Acute kidney injury [Unknown]
  - Leukocytosis [Unknown]
  - Sepsis [Unknown]
  - Secretion discharge [Recovering/Resolving]
  - Diarrhoea [Recovered/Resolved]
  - Thrombocytopenia [Recovered/Resolved]
  - Acute respiratory distress syndrome [Recovered/Resolved]
  - Hypocapnia [Not Recovered/Not Resolved]
  - Interstitial lung disease [Not Recovered/Not Resolved]
  - Myopathy [Unknown]
  - Cholecystitis [Unknown]
  - Bronchial disorder [Not Recovered/Not Resolved]
  - Diaphragmatic paralysis [Not Recovered/Not Resolved]
  - Malnutrition [Recovering/Resolving]
  - Pancreatic failure [Unknown]
  - Neuropathy peripheral [Unknown]
  - Anaemia [Unknown]
  - Immunodeficiency [Unknown]
  - Hypotension [Recovered/Resolved]
  - Hyperkalaemia [Unknown]
  - Septic shock [Recovered/Resolved]
  - Clostridium difficile infection [Recovered/Resolved]
  - Pneumonia pneumococcal [Recovered/Resolved]
  - Disorientation [Recovered/Resolved]
  - Anuria [Recovered/Resolved]
  - Hypercalcaemia [Unknown]
  - Beta haemolytic streptococcal infection [Unknown]
  - Multiple organ dysfunction syndrome [Recovered/Resolved]
  - Catheter site haemorrhage [Recovered/Resolved]
  - Parainfluenzae virus infection [Recovered/Resolved]
  - Weight decreased [Recovering/Resolving]
  - Chronic respiratory disease [Not Recovered/Not Resolved]
  - Hyperbilirubinaemia [Recovering/Resolving]

NARRATIVE: CASE EVENT DATE: 2017
